FAERS Safety Report 24313512 (Version 1)
Quarter: 2024Q3

REPORT INFORMATION
  Report Type: Spontaneous
  Country: AU (occurrence: AU)
  Receive Date: 20240912
  Receipt Date: 20240912
  Transmission Date: 20241016
  Serious: Yes (Hospitalization, Other)
  Sender: GLAXOSMITHKLINE
  Company Number: AU-GLAXOSMITHKLINE-AU2024GSK111786

PATIENT

DRUGS (6)
  1. LAMOTRIGINE [Suspect]
     Active Substance: LAMOTRIGINE
     Indication: Temporal lobe epilepsy
     Dosage: 50 MG, BID, INCREASING DOSES
  2. LAMOTRIGINE [Suspect]
     Active Substance: LAMOTRIGINE
     Dosage: 1350 MG
  3. ACETAMINOPHEN [Suspect]
     Active Substance: ACETAMINOPHEN
     Indication: Product used for unknown indication
     Dosage: UNK
  4. PHENYTOIN [Concomitant]
     Active Substance: PHENYTOIN
     Indication: Epilepsy
     Dosage: UNK
  5. CARBAMAZEPINE [Concomitant]
     Active Substance: CARBAMAZEPINE
     Indication: Epilepsy
     Dosage: UNK
  6. PHENOBARBITAL [Concomitant]
     Active Substance: PHENOBARBITAL
     Indication: Epilepsy
     Dosage: UNK

REACTIONS (8)
  - Toxicity to various agents [Unknown]
  - Intentional self-injury [Unknown]
  - Flushing [Unknown]
  - Nystagmus [Unknown]
  - Hypertonia [Unknown]
  - Reflexes abnormal [Recovered/Resolved]
  - Ataxia [Unknown]
  - Overdose [Unknown]
